FAERS Safety Report 6161788-5 (Version None)
Quarter: 2009Q2

REPORT INFORMATION
  Report Type: 
  Country: None (occurrence: None)
  Receive Date: 20090421
  Receipt Date: 20090415
  Transmission Date: 20091009
  Serious: Yes (Life-Threatening)
  Sender: FDA-Public Use
  Company Number: CH-ROCHE-625571

PATIENT
  Age: 90 Year
  Sex: Female
  Weight: 48 kg

DRUGS (17)
  1. TORASEMIDE [Suspect]
     Indication: DRUG USE FOR UNKNOWN INDICATION
     Dosage: REPORTED DRUG: TORASEM MEPHA 10.
     Route: 048
     Dates: start: 20081215, end: 20090203
  2. BACTRIM [Suspect]
     Indication: DRUG USE FOR UNKNOWN INDICATION
     Dosage: REPORTED STRENGTH: 800MG/160MG.
     Route: 048
     Dates: start: 20090106, end: 20090114
  3. ALDACTONE [Suspect]
     Indication: DRUG USE FOR UNKNOWN INDICATION
     Dosage: REPORTED DRUG: ALDACTONE 25 MG FILMTABLETTEN
     Route: 048
     Dates: start: 20081219, end: 20090225
  4. VANCOMYCIN HCL [Suspect]
     Indication: DRUG USE FOR UNKNOWN INDICATION
     Dosage: REPORTED DRUG: VANCOCIN 250 MG CAPSULES.
     Route: 065
     Dates: start: 20090123, end: 20090130
  5. DAFALGAN [Suspect]
     Indication: DRUG USE FOR UNKNOWN INDICATION
     Dosage: REPORTED DRUG: DAFALGAN 1 GRAM FILMTABLETTEN.
     Route: 048
     Dates: start: 20081219, end: 20090121
  6. ENALAPRIL MALEATE [Suspect]
     Indication: DRUG USE FOR UNKNOWN INDICATION
     Dosage: REPORTED DRUG: ENALAPRIL HELVEPHARM 10 TABLETTEN
     Route: 048
  7. ENALAPRIL MALEATE [Suspect]
     Route: 048
     Dates: start: 20081216, end: 20081230
  8. CO AMOXIN [Suspect]
     Indication: DRUG USE FOR UNKNOWN INDICATION
     Dosage: REPORTED DRUG: CO-AMOXI (AMOXICILLINE/CLAVULANATE POTASSIUM)
     Route: 041
     Dates: start: 20081230, end: 20090106
  9. ZOLOFT [Suspect]
     Indication: DRUG USE FOR UNKNOWN INDICATION
     Route: 048
     Dates: start: 20090114, end: 20090208
  10. TOLVON [Concomitant]
     Route: 048
     Dates: start: 20090206
  11. SEROQUEL [Concomitant]
     Route: 048
     Dates: start: 20090130
  12. EUTHYROX [Concomitant]
     Dosage: REPORTED DURATION: LONG TERM.
  13. DISTRANEURIN [Concomitant]
     Dosage: REPORTED DURATION: LONG TERM.
     Route: 048
  14. FLAGYL [Concomitant]
     Route: 048
     Dates: start: 20090116, end: 20090122
  15. CLEXANE [Concomitant]
     Dosage: REPORTED STRENGTH: 100 MG/ML.
     Route: 058
     Dates: start: 20081219, end: 20081231
  16. FOLVITE [Concomitant]
     Route: 048
     Dates: start: 20081219, end: 20090101
  17. CALCIMAGON [Concomitant]
     Route: 048
     Dates: start: 20081219, end: 20090203

REACTIONS (1)
  - RENAL FAILURE [None]
